FAERS Safety Report 4460527-3 (Version None)
Quarter: 2004Q3

REPORT INFORMATION
  Report Type: 
  Country: None (occurrence: None)
  Receive Date: 20040923
  Receipt Date: 20040917
  Transmission Date: 20050211
  Serious: Yes (Hospitalization)
  Sender: FDA-Public Use
  Company Number: 0400039EN0020P

PATIENT
  Age: 7 Year
  Sex: Female

DRUGS (5)
  1. ONCASPAR [Suspect]
     Indication: ACUTE LYMPHOCYTIC LEUKAEMIA
  2. CYTOXAN [Concomitant]
  3. ETOPOSIDE [Concomitant]
  4. CHLORHEXIDINE [Concomitant]
  5. ODANSETRON [Concomitant]

REACTIONS (1)
  - HYPERTRIGLYCERIDAEMIA [None]
